FAERS Safety Report 8779492 (Version 1)
Quarter: 2012Q4

REPORT INFORMATION
  Report Type: 
  Country: CA (occurrence: CA)
  Receive Date: 20120912
  Receipt Date: 20120912
  Transmission Date: 20130627
  Serious: Yes (Other)
  Sender: FDA-Public Use
  Company Number: CA-JNJFOC-20120902147

PATIENT

DRUGS (11)
  1. DOXORUBICIN [Suspect]
     Indication: NEUROBLASTOMA
     Dosage: (1 mg/kg) on day 1 (cycle 4)
     Route: 042
  2. CARBOPLATIN [Suspect]
     Indication: NEUROBLASTOMA
     Dosage: on day 1 (18 mg/kg if the patient was { the 365 days of age or weighing { / = 12 kg) cycle 4
     Route: 065
  3. CARBOPLATIN [Suspect]
     Indication: NEUROBLASTOMA
     Dosage: on day 1 (18 mg/kg if the patient was { the 365 days of age or weighing { / = 12 kg) cycle 1
     Route: 065
  4. CARBOPLATIN [Suspect]
     Indication: NEUROBLASTOMA
     Dosage: on day 1 (18 mg/kg if the patient was { the 365 days of age or weighing { / = 12 kg) cycle 2
     Route: 065
  5. ETOPOSIDE [Suspect]
     Indication: NEUROBLASTOMA
     Dosage: (4 mg/kg) on days 1, 2, and 3, cycle 3
     Route: 065
  6. ETOPOSIDE [Suspect]
     Indication: NEUROBLASTOMA
     Dosage: (4 mg/kg) on days 1, 2, and 3, cycle 4
     Route: 065
  7. ETOPOSIDE [Suspect]
     Indication: NEUROBLASTOMA
     Dosage: (4 mg/kg) on days 1, 2, and 3, cycle 1
     Route: 065
  8. CYCLOPHOSPHAMIDE [Suspect]
     Indication: NEUROBLASTOMA
     Dosage: (33 mg/kg) on days 1 (cycle 3)
     Route: 065
  9. CYCLOPHOSPHAMIDE [Suspect]
     Indication: NEUROBLASTOMA
     Dosage: (33 mg/kg) on days 1 (cycle 2)
     Route: 065
  10. GRANULOCYTE COLONY-STIMULATING FACTOR [Concomitant]
     Indication: INFECTION PROPHYLAXIS
     Dosage: after each cycle of chemotherapy
     Route: 065
  11. GRANULOCYTE MACROPHAGE COLONY STIM FACTOR [Concomitant]
     Indication: INFECTION PROPHYLAXIS
     Dosage: after each cycle of chemotherapy
     Route: 065

REACTIONS (7)
  - Hepatotoxicity [Unknown]
  - Gastrointestinal toxicity [Unknown]
  - Bone marrow toxicity [Unknown]
  - Adverse event [Unknown]
  - Infection [Unknown]
  - Drug hypersensitivity [Unknown]
  - Off label use [Unknown]
